FAERS Safety Report 7328668-0 (Version None)
Quarter: 2011Q1

REPORT INFORMATION
  Report Type: 
  Country: None (occurrence: None)
  Receive Date: 20110303
  Receipt Date: 20110222
  Transmission Date: 20110831
  Serious: Yes (Other)
  Sender: FDA-Public Use
  Company Number: US-JNJFOC-20110207509

PATIENT
  Sex: Male
  Weight: 77 kg

DRUGS (2)
  1. CHEMOTHERAPY [Suspect]
     Indication: SARCOMA
     Route: 065
  2. DOXIL [Suspect]
     Indication: SARCOMA
     Route: 042

REACTIONS (3)
  - METASTASIS [None]
  - GAMMA-GLUTAMYLTRANSFERASE INCREASED [None]
  - SARCOMA [None]
